FAERS Safety Report 24196164 (Version 2)
Quarter: 2024Q3

REPORT INFORMATION
  Report Type: Spontaneous
  Country: CN (occurrence: CN)
  Receive Date: 20240809
  Receipt Date: 20240820
  Transmission Date: 20241016
  Serious: Yes (Other)
  Sender: PFIZER
  Company Number: CN-TAKEDA-2024TUS077667

PATIENT
  Age: 21 Year
  Sex: Male
  Weight: 72.5 kg

DRUGS (13)
  1. ADCETRIS [Suspect]
     Active Substance: BRENTUXIMAB VEDOTIN
     Indication: Hodgkin^s disease nodular sclerosis stage III
     Dosage: 87.60 MILLIGRAM, QD, D1, D15
     Route: 041
     Dates: start: 20240511, end: 20240511
  2. ADCETRIS [Suspect]
     Active Substance: BRENTUXIMAB VEDOTIN
     Indication: Lymphoma
  3. PIRARUBICIN [Suspect]
     Active Substance: PIRARUBICIN
     Indication: Lymphoma
     Dosage: 47 MILLIGRAM, QD, D1,15
     Route: 041
     Dates: start: 20240511, end: 20240511
  4. VINDESINE [Suspect]
     Active Substance: VINDESINE
     Indication: Lymphoma
     Dosage: 5.6 MILLIGRAM, QD, D1. D15
     Route: 041
     Dates: start: 20240511, end: 20240511
  5. DACARBAZINE [Suspect]
     Active Substance: DACARBAZINE
     Indication: Lymphoma
     Dosage: 708.0 MILLIGRAM, QD, D1, D15, Q28D
     Route: 041
     Dates: start: 20240511, end: 20240511
  6. MAGNESIUM ISOGLYCYRRHIZINATE [Concomitant]
     Active Substance: MAGNESIUM ISOGLYCYRRHIZINATE
     Indication: Lymphoma
     Dosage: 200 MILLIGRAM, QD
     Route: 041
     Dates: start: 20240511, end: 20240511
  7. MAGNESIUM ISOGLYCYRRHIZINATE [Concomitant]
     Active Substance: MAGNESIUM ISOGLYCYRRHIZINATE
     Indication: Adjuvant therapy
  8. GLUTATHIONE [Concomitant]
     Active Substance: GLUTATHIONE
     Indication: Lymphoma
     Dosage: 1.2 GRAM, QD
     Route: 041
     Dates: start: 20240511, end: 20240511
  9. GLUTATHIONE [Concomitant]
     Active Substance: GLUTATHIONE
     Indication: Adjuvant therapy
  10. PROMETHAZINE HYDROBROMIDE [Concomitant]
     Active Substance: PROMETHAZINE HYDROBROMIDE
     Indication: Lymphoma
     Dosage: 12.50 MILLIGRAM
     Route: 030
     Dates: start: 20240511, end: 20240511
  11. PROMETHAZINE HYDROBROMIDE [Concomitant]
     Active Substance: PROMETHAZINE HYDROBROMIDE
     Indication: Adjuvant therapy
  12. TROPISETRON HYDROCHLORIDE [Concomitant]
     Active Substance: TROPISETRON HYDROCHLORIDE
     Indication: Lymphoma
     Dosage: 5 MILLIGRAM, QD
     Route: 041
     Dates: start: 20240511, end: 20240511
  13. TROPISETRON HYDROCHLORIDE [Concomitant]
     Active Substance: TROPISETRON HYDROCHLORIDE
     Indication: Adjuvant therapy

REACTIONS (3)
  - Drug-induced liver injury [Recovering/Resolving]
  - Blood phosphorus increased [Unknown]
  - Blood sodium decreased [Unknown]

NARRATIVE: CASE EVENT DATE: 20240527
